FAERS Safety Report 17520035 (Version 1)
Quarter: 2020Q1

REPORT INFORMATION
  Report Type: Spontaneous
  Country: IL (occurrence: IL)
  Receive Date: 20200309
  Receipt Date: 20200309
  Transmission Date: 20200409
  Serious: Yes (Life-Threatening, Hospitalization, Disabling)
  Sender: FDA-Public Use
  Company Number: None

PATIENT
  Age: 43 Year
  Sex: Male

DRUGS (1)
  1. EVICEL [Suspect]
     Active Substance: FIBRINOGEN HUMAN\THROMBIN HUMAN
     Indication: SURGERY

REACTIONS (6)
  - Product label confusion [None]
  - Lymphoma [None]
  - Post procedural complication [None]
  - Product contamination physical [None]
  - Disease complication [None]
  - Granuloma [None]

NARRATIVE: CASE EVENT DATE: 20140119
